FAERS Safety Report 18188459 (Version 3)
Quarter: 2020Q4

REPORT INFORMATION
  Report Type: Report from Study
  Country: US (occurrence: US)
  Receive Date: 20200824
  Receipt Date: 20201107
  Transmission Date: 20210113
  Serious: Yes (Other)
  Sender: FDA-Public Use
  Company Number: NVSC2020US230526

PATIENT
  Sex: Female

DRUGS (4)
  1. ENTRESTO [Suspect]
     Active Substance: SACUBITRIL\VALSARTAN
     Indication: PRODUCT USED FOR UNKNOWN INDICATION
     Dosage: UNK UNK, BID
     Route: 048
  2. METFORMIN HYDROCHLORIDE. [Suspect]
     Active Substance: METFORMIN HYDROCHLORIDE
     Indication: DIABETES MELLITUS
     Dosage: 1000 MG, BID
     Route: 065
  3. ENTRESTO [Suspect]
     Active Substance: SACUBITRIL\VALSARTAN
     Dosage: 100 MG (49/51 MG)
     Route: 048
  4. ENTRESTO [Suspect]
     Active Substance: SACUBITRIL\VALSARTAN
     Dosage: 50 MG (24/26 MG)
     Route: 048

REACTIONS (27)
  - Sleep disorder [Unknown]
  - Diarrhoea [Unknown]
  - Abdominal discomfort [Unknown]
  - Throat irritation [Unknown]
  - Chest pain [Unknown]
  - Suicidal ideation [Unknown]
  - Fatigue [Unknown]
  - Headache [Unknown]
  - Peripheral vascular disorder [Unknown]
  - Depression [Not Recovered/Not Resolved]
  - Feeling abnormal [Unknown]
  - Weight fluctuation [Unknown]
  - Diabetes mellitus [Unknown]
  - Hypertension [Unknown]
  - Osteoporosis [Unknown]
  - Decreased immune responsiveness [Unknown]
  - Anxiety [Not Recovered/Not Resolved]
  - Malaise [Unknown]
  - Weight increased [Unknown]
  - Eructation [Unknown]
  - Product dose omission issue [Unknown]
  - Throat clearing [Unknown]
  - Vomiting [Unknown]
  - Vision blurred [Unknown]
  - Hypotension [Unknown]
  - Memory impairment [Unknown]
  - Arthritis [Unknown]
